FAERS Safety Report 5738365-0 (Version None)
Quarter: 2008Q2

REPORT INFORMATION
  Report Type: 
  Country: None (occurrence: None)
  Receive Date: 20080513
  Receipt Date: 20080502
  Transmission Date: 20081010
  Serious: Yes (Other)
  Sender: FDA-Public Use
  Company Number: CHPA2008US07743

PATIENT
  Age: 54 Month
  Sex: Female

DRUGS (1)
  1. TRIAMINIC DAY TIME COLD + COUGH (NCH) (DEXTROMETHORPHAN HYDROBROMIDE, [Suspect]
     Indication: NASAL CONGESTION
     Dosage: 1 TSP, BID, ORAL
     Route: 048
     Dates: start: 20080502

REACTIONS (4)
  - DYSPNOEA [None]
  - INCREASED UPPER AIRWAY SECRETION [None]
  - RESPIRATORY RATE INCREASED [None]
  - VOMITING [None]
